FAERS Safety Report 9131199 (Version 1)
Quarter: 2013Q1

REPORT INFORMATION
  Report Type: Spontaneous
  Country: VE (occurrence: VE)
  Receive Date: 20130301
  Receipt Date: 20130301
  Transmission Date: 20140127
  Serious: Yes (Other)
  Sender: FDA-Public Use
  Company Number: PHHY2012VE080238

PATIENT
  Age: 79 Year
  Sex: Female

DRUGS (7)
  1. ACLASTA [Suspect]
     Indication: OSTEOPOROSIS
     Dosage: 5 MG, UNK
     Route: 042
     Dates: start: 20110703
  2. ACLASTA [Suspect]
     Dosage: 5 MG, UNK
     Route: 042
     Dates: start: 20120703
  3. NIMODIPINE [Concomitant]
     Indication: VERTIGO
     Dosage: UNK
     Route: 048
     Dates: start: 2007
  4. LERCADIP [Concomitant]
     Indication: HYPERTENSION
     Dosage: UNK
     Route: 048
  5. HYDROCHLOROTHIAZIDE [Concomitant]
     Indication: HYPERTENSION
     Dosage: UNK
  6. COUMADIN//WARFARIN SODIUM [Concomitant]
     Indication: THROMBOPHLEBITIS
     Dosage: 5 MG, ONCE/SINGLE
     Route: 048
     Dates: start: 2005
  7. DIOVENOR [Concomitant]
     Indication: THROMBOPHLEBITIS
     Dosage: 600 MG, ONCE/SINGLE
     Route: 048

REACTIONS (6)
  - Diabetes mellitus [Recovered/Resolved]
  - Muscle contracture [Unknown]
  - Spinal pain [Unknown]
  - Arthralgia [Unknown]
  - Pain in extremity [Not Recovered/Not Resolved]
  - Myalgia [Not Recovered/Not Resolved]
